FAERS Safety Report 21188673 (Version 1)
Quarter: 2022Q3

REPORT INFORMATION
  Report Type: Spontaneous
  Country: NL (occurrence: NL)
  Receive Date: 20220809
  Receipt Date: 20220809
  Transmission Date: 20221027
  Serious: Yes (Other)
  Sender: FDA-Public Use
  Company Number: None

PATIENT
  Age: 11 Year
  Sex: Male
  Weight: 33 kg

DRUGS (3)
  1. DOXYCYCLINE [Suspect]
     Active Substance: DOXYCYCLINE
     Indication: Facial paresis
     Dosage: 150 MILLIGRAM DAILY;  ADJUSTED TO 2 DD 75 ,BRAND NAME NOT SPECIFIED , THERAPY END DATE : ASKU , FORM
     Dates: start: 20220703
  2. DOXYCYCLINE [Suspect]
     Active Substance: DOXYCYCLINE
     Indication: Borrelia infection
     Dosage: 200 MILLIGRAM DAILY; INITIALLY 2 DD 100 MG/ BRAND NAME NOT SPECIFIED , THERAPY END DATE : ASKU , FOR
     Dates: start: 20220701
  3. PREDNISOLONE [Concomitant]
     Active Substance: PREDNISOLONE
     Indication: Product used for unknown indication
     Dosage: FORM STRENGTH :  35 MG (MILLIGRAM) ,  BRAND NAME NOT SPECIFIED , THERAPY START DATE AND END DATE : A

REACTIONS (4)
  - Loss of consciousness [Not Recovered/Not Resolved]
  - Malaise [Recovering/Resolving]
  - Vomiting [Not Recovered/Not Resolved]
  - Presyncope [Recovering/Resolving]

NARRATIVE: CASE EVENT DATE: 20220701
